FAERS Safety Report 22269428 (Version 1)
Quarter: 2023Q2

REPORT INFORMATION
  Report Type: Spontaneous
  Country: CN (occurrence: CN)
  Receive Date: 20230501
  Receipt Date: 20230501
  Transmission Date: 20230721
  Serious: Yes (Other)
  Sender: FDA-Public Use
  Company Number: CN-002147023-NVSC2023CN094761

PATIENT
  Age: 4 Month
  Sex: Male

DRUGS (7)
  1. CYCLOSPORINE [Suspect]
     Active Substance: CYCLOSPORINE
     Indication: Venoocclusive liver disease
     Dosage: 100 MG, QD
     Route: 065
  2. CYCLOSPORINE [Suspect]
     Active Substance: CYCLOSPORINE
     Indication: Acute graft versus host disease
  3. CLARITHROMYCIN [Concomitant]
     Active Substance: CLARITHROMYCIN
     Indication: Combined immunodeficiency
     Dosage: UNK
     Route: 065
  4. ETHAMBUTOL [Concomitant]
     Active Substance: ETHAMBUTOL HYDROCHLORIDE
     Indication: Combined immunodeficiency
     Dosage: UNK
     Route: 065
  5. ISONIAZID [Concomitant]
     Active Substance: ISONIAZID
     Indication: Combined immunodeficiency
     Dosage: UNK
     Route: 065
  6. LINEZOLID [Concomitant]
     Active Substance: LINEZOLID
     Indication: Combined immunodeficiency
     Dosage: UNK
     Route: 065
  7. RIFAMPIN [Concomitant]
     Active Substance: RIFAMPIN
     Indication: Combined immunodeficiency
     Dosage: UNK
     Route: 065

REACTIONS (3)
  - Immune reconstitution inflammatory syndrome [Unknown]
  - Drug withdrawal syndrome [Unknown]
  - Accidental overdose [Unknown]
